FAERS Safety Report 18088343 (Version 4)
Quarter: 2020Q4

REPORT INFORMATION
  Report Type: Other
  Country: US (occurrence: US)
  Receive Date: 20200729
  Receipt Date: 20201030
  Transmission Date: 20210113
  Serious: Yes (Hospitalization)
  Sender: FDA-Public Use
  Company Number: US-ROCHE-2644748

PATIENT
  Sex: Male
  Weight: 104.87 kg

DRUGS (9)
  1. OCREVUS [Suspect]
     Active Substance: OCRELIZUMAB
     Route: 042
     Dates: start: 20190513
  2. TRAZODONE [Concomitant]
     Active Substance: TRAZODONE HYDROCHLORIDE
  3. BENADRYL [Concomitant]
     Active Substance: DIPHENHYDRAMINE HYDROCHLORIDE
  4. OCREVUS [Suspect]
     Active Substance: OCRELIZUMAB
     Indication: PRIMARY PROGRESSIVE MULTIPLE SCLEROSIS
     Route: 042
     Dates: start: 20191113
  5. FLOMAX [Concomitant]
     Active Substance: TAMSULOSIN HYDROCHLORIDE
  6. BUPROPION. [Concomitant]
     Active Substance: BUPROPION
     Dosage: IN THE MORNING WITH BREAKFAST.
  7. OCREVUS [Suspect]
     Active Substance: OCRELIZUMAB
     Dosage: 300 ,MG ON DAY 15
     Route: 042
     Dates: start: 20181212
  8. OCREVUS [Suspect]
     Active Substance: OCRELIZUMAB
     Dosage: 300 MG ON DAY 1 AND 15 THEN 600 MG ONCE IN 6 MONTHS
     Route: 042
     Dates: start: 20181128
  9. NEURONTIN [Concomitant]
     Active Substance: GABAPENTIN
     Indication: NEURALGIA
     Dates: start: 201810

REACTIONS (5)
  - Hypoaesthesia [Recovering/Resolving]
  - Amnesia [Unknown]
  - Neuralgia [Recovering/Resolving]
  - COVID-19 [Recovered/Resolved]
  - Weight increased [Not Recovered/Not Resolved]

NARRATIVE: CASE EVENT DATE: 2019
